FAERS Safety Report 7472019-8 (Version None)
Quarter: 2011Q2

REPORT INFORMATION
  Report Type: 
  Country: None (occurrence: None)
  Receive Date: 20110511
  Receipt Date: 20101001
  Transmission Date: 20111010
  Serious: No
  Sender: FDA-Public Use
  Company Number: A0884507A

PATIENT
  Age: 60 Year
  Sex: Female

DRUGS (2)
  1. TYKERB [Suspect]
     Indication: BREAST CANCER
     Dosage: 1000MG PER DAY
     Route: 048
     Dates: start: 20100903, end: 20101001
  2. NO CONCURRENT MEDICATION [Concomitant]

REACTIONS (4)
  - URTICARIA [None]
  - RASH [None]
  - CARDIOVASCULAR DISORDER [None]
  - HYPERSENSITIVITY [None]
